FAERS Safety Report 8448715-2 (Version None)
Quarter: 2012Q2

REPORT INFORMATION
  Report Type: 
  Country: None (occurrence: None)
  Receive Date: 20120619
  Receipt Date: 20120605
  Transmission Date: 20120825
  Serious: Yes (Other)
  Sender: FDA-Public Use
  Company Number: AU-NOVEN-12AU004771

PATIENT
  Age: 46 Year
  Sex: Male

DRUGS (4)
  1. PAROXETINE [Suspect]
     Indication: ANXIETY
     Dosage: 40 MG, QD
     Route: 065
  2. PAROXETINE [Suspect]
     Indication: INSOMNIA
     Dosage: 60 MG, QD
     Route: 065
  3. PAROXETINE [Suspect]
     Indication: WEIGHT DECREASED
  4. UNKNOWN [Concomitant]

REACTIONS (8)
  - DELIRIUM [None]
  - DELUSION [None]
  - ANOSOGNOSIA [None]
  - AKATHISIA [None]
  - SUICIDAL IDEATION [None]
  - MANIA [None]
  - HOMICIDE [None]
  - AGGRESSION [None]
